FAERS Safety Report 7527951-3 (Version None)
Quarter: 2011Q2

REPORT INFORMATION
  Report Type: 
  Country: None (occurrence: None)
  Receive Date: 20110607
  Receipt Date: 20030704
  Transmission Date: 20111010
  Serious: Yes (Hospitalization)
  Sender: FDA-Public Use
  Company Number: PHFR2003GB02701

PATIENT
  Sex: Female

DRUGS (2)
  1. CLOZARIL [Suspect]
     Dosage: 100 MG
     Route: 048
     Dates: start: 20030702, end: 20030702
  2. CLOZARIL [Suspect]
     Indication: SCHIZOPHRENIA
     Route: 048
     Dates: start: 20021203, end: 20030629

REACTIONS (2)
  - MALAISE [None]
  - MEDICATION ERROR [None]
